FAERS Safety Report 13002586 (Version 1)
Quarter: 2016Q4

REPORT INFORMATION
  Report Type: Spontaneous
  Country: US (occurrence: US)
  Receive Date: 20161206
  Receipt Date: 20161206
  Transmission Date: 20170207
  Serious: No
  Sender: FDA-Public Use
  Company Number: US-BAYER-2016-230535

PATIENT
  Age: 63 Year
  Sex: Male
  Weight: 92.06 kg

DRUGS (1)
  1. MIRALAX [Suspect]
     Active Substance: POLYETHYLENE GLYCOL 3350
     Dosage: DOSAGE AS USED: 8 OUNCES
     Route: 048
     Dates: start: 20161205, end: 20161205

REACTIONS (2)
  - Product use issue [Unknown]
  - Off label use [Unknown]
